FAERS Safety Report 18430782 (Version 2)
Quarter: 2020Q4

REPORT INFORMATION
  Report Type: Spontaneous
  Country: JP (occurrence: JP)
  Receive Date: 20201027
  Receipt Date: 20201126
  Transmission Date: 20210114
  Serious: Yes (Life-Threatening, Hospitalization, Other)
  Sender: FDA-Public Use
  Company Number: JP-009507513-2008JPN002081J

PATIENT
  Age: 76 Year
  Sex: Male
  Weight: 51 kg

DRUGS (1)
  1. KEYTRUDA [Suspect]
     Active Substance: PEMBROLIZUMAB
     Indication: LUNG SQUAMOUS CELL CARCINOMA STAGE IV
     Dosage: 200 MILLIGRAM, Q3W
     Route: 041
     Dates: start: 20190403, end: 20200512

REACTIONS (4)
  - Neutrophil count decreased [Recovered/Resolved]
  - Immune-mediated hepatic disorder [Recovering/Resolving]
  - Rash [Recovered/Resolved]
  - Thyroid disorder [Not Recovered/Not Resolved]

NARRATIVE: CASE EVENT DATE: 20200512
